FAERS Safety Report 24312082 (Version 1)
Quarter: 2024Q3

REPORT INFORMATION
  Report Type: Report from Study
  Country: SI (occurrence: SI)
  Receive Date: 20240912
  Receipt Date: 20240912
  Transmission Date: 20241016
  Serious: Yes (Other)
  Sender: ROCHE
  Company Number: SI-ROCHE-10000075018

PATIENT

DRUGS (4)
  1. ENTRECTINIB [Suspect]
     Active Substance: ENTRECTINIB
     Indication: Non-small cell lung cancer
     Route: 048
  2. CRIZOTINIB [Suspect]
     Active Substance: CRIZOTINIB
     Indication: Non-small cell lung cancer
     Route: 048
  3. REPOTRECTINIB [Suspect]
     Active Substance: REPOTRECTINIB
     Indication: Non-small cell lung cancer
     Route: 065
  4. REPOTRECTINIB [Suspect]
     Active Substance: REPOTRECTINIB
     Route: 065

REACTIONS (13)
  - Oedema peripheral [Unknown]
  - Nausea [Unknown]
  - Vomiting [Unknown]
  - Neuralgia [Unknown]
  - Neutropenia [Unknown]
  - Renal failure [Unknown]
  - Transaminases increased [Unknown]
  - Hypertriglyceridaemia [Unknown]
  - Hyperaesthesia [Unknown]
  - Paraesthesia [Unknown]
  - Fatigue [Unknown]
  - Anaemia [Unknown]
  - Vision blurred [Unknown]
